FAERS Safety Report 4371997-3 (Version None)
Quarter: 2004Q2

REPORT INFORMATION
  Report Type: 
  Country: None (occurrence: None)
  Receive Date: 20040602
  Receipt Date: 20040518
  Transmission Date: 20050107
  Serious: No
  Sender: FDA-Public Use
  Company Number: B033187A

PATIENT
  Age: 36 Year
  Sex: Female

DRUGS (1)
  1. COMPAZINE [Suspect]
     Indication: NAUSEA
     Dosage: 10 MG / FOUR TIMES PER DAY

REACTIONS (3)
  - APHONIA [None]
  - DYSTONIA [None]
  - LARYNGEAL DISORDER [None]
